FAERS Safety Report 5229242-2 (Version None)
Quarter: 2007Q1

REPORT INFORMATION
  Report Type: 
  Country: None (occurrence: None)
  Receive Date: 20061201
  Receipt Date: 20060908
  Transmission Date: 20070707
  Serious: No
  Sender: FDA-Public Use
  Company Number: US200609002347

PATIENT
  Sex: Male

DRUGS (2)
  1. CYMBALTA [Suspect]
     Indication: PAIN
     Dosage: 30 MG, DAILY (1/D)
  2. TERAZOSIN HCL [Concomitant]

REACTIONS (3)
  - DRUG INTERACTION POTENTIATION [None]
  - OEDEMA PERIPHERAL [None]
  - SWELLING FACE [None]
